FAERS Safety Report 8427472-X (Version None)
Quarter: 2012Q2

REPORT INFORMATION
  Report Type: 
  Country: None (occurrence: None)
  Receive Date: 20120611
  Receipt Date: 20120601
  Transmission Date: 20120825
  Serious: Yes (Hospitalization, Other)
  Sender: FDA-Public Use
  Company Number: JP-VERTEX PHARMACEUTICALS INC.-AE-2012-008322

PATIENT
  Age: 53 Year
  Sex: Male

DRUGS (9)
  1. EPADEL S [Concomitant]
     Route: 048
  2. FEROTYM [Concomitant]
     Route: 048
  3. CANDESARTAN CILEXETIL [Concomitant]
     Route: 048
  4. NORVASC [Concomitant]
     Route: 048
  5. CLARITIN REDITABS [Concomitant]
     Route: 048
  6. RIBAVIRIN [Concomitant]
     Indication: HEPATITIS C
     Route: 048
     Dates: start: 20120328
  7. TELAVIC (TELAPREVIR) [Suspect]
     Indication: HEPATITIS C
     Route: 048
     Dates: start: 20120328
  8. PEGINTERFERON ALFA-2B [Concomitant]
     Route: 051
     Dates: start: 20120328
  9. LIVALO [Concomitant]
     Route: 048

REACTIONS (2)
  - RASH [None]
  - ANAEMIA [None]
